FAERS Safety Report 7156940-6 (Version None)
Quarter: 2010Q4

REPORT INFORMATION
  Report Type: 
  Country: None (occurrence: None)
  Receive Date: 20101214
  Receipt Date: 20101206
  Transmission Date: 20110411
  Serious: Yes (Hospitalization)
  Sender: FDA-Public Use
  Company Number: SE-ASTRAZENECA-2010SE52416

PATIENT
  Age: 88 Year
  Sex: Male

DRUGS (7)
  1. SELOKEN ZOC [Suspect]
     Indication: ESSENTIAL HYPERTENSION
     Route: 048
     Dates: end: 20100912
  2. CAPTOPRIL [Suspect]
     Dates: end: 20100912
  3. SIMVASTATIN [Concomitant]
  4. SERTRALIN [Concomitant]
  5. WARAN [Concomitant]
     Indication: PULMONARY EMBOLISM
  6. DERMOVAT [Concomitant]
  7. MIRTAZAPIN [Concomitant]

REACTIONS (2)
  - BRADYCARDIA [None]
  - ORTHOSTATIC HYPOTENSION [None]
